FAERS Safety Report 13073772 (Version 3)
Quarter: 2017Q3

REPORT INFORMATION
  Report Type: Spontaneous
  Country: GB (occurrence: GB)
  Receive Date: 20161229
  Receipt Date: 20170726
  Transmission Date: 20171127
  Serious: Yes (Other)
  Sender: FDA-Public Use
  Company Number: GB-ABBVIE-16P-167-1825717-00

PATIENT
  Age: 14 Year
  Sex: Female

DRUGS (3)
  1. NORAMEDA PROPOFOL [Suspect]
     Active Substance: PROPOFOL
     Indication: ANAESTHESIA
     Route: 058
     Dates: start: 20160903, end: 20160903
  2. TAZOCIN [Concomitant]
     Active Substance: PIPERACILLIN SODIUM\TAZOBACTAM SODIUM
     Indication: PRODUCT USED FOR UNKNOWN INDICATION
  3. SEVOFRANE [Suspect]
     Active Substance: SEVOFLURANE
     Indication: ANAESTHESIA
     Route: 055
     Dates: start: 20160903, end: 20160903

REACTIONS (2)
  - Tremor [Recovered/Resolved]
  - Pyrexia [Recovered/Resolved]

NARRATIVE: CASE EVENT DATE: 20160903
